FAERS Safety Report 5907021-8 (Version None)
Quarter: 2008Q4

REPORT INFORMATION
  Report Type: 
  Country: None (occurrence: None)
  Receive Date: 20081003
  Receipt Date: 20080929
  Transmission Date: 20090506
  Serious: Yes (Hospitalization)
  Sender: FDA-Public Use
  Company Number: PL-BRISTOL-MYERS SQUIBB COMPANY-14352058

PATIENT
  Age: 50 Year
  Sex: Female

DRUGS (5)
  1. ABILIFY [Suspect]
     Indication: SCHIZOPHRENIA, PARANOID TYPE
     Dosage: STILL RECEIVES 30MG DAILY.
     Route: 048
     Dates: start: 20080107
  2. TEGRETOL [Concomitant]
     Dates: start: 20080424, end: 20080519
  3. NEUROTOP RETARD [Concomitant]
  4. OLANZAPINE [Concomitant]
  5. CARBAMAZEPINE [Concomitant]

REACTIONS (2)
  - HALLUCINATION, AUDITORY [None]
  - SUICIDE ATTEMPT [None]
